FAERS Safety Report 7218158-8 (Version None)
Quarter: 2010Q4

REPORT INFORMATION
  Report Type: 
  Country: None (occurrence: None)
  Receive Date: 20101220
  Receipt Date: 20101214
  Transmission Date: 20110411
  Serious: Yes (Hospitalization)
  Sender: FDA-Public Use
  Company Number: FKO201000570

PATIENT
  Age: 27 Year
  Sex: Male

DRUGS (2)
  1. METHOTREXATE [Suspect]
     Indication: CROHN'S DISEASE
  2. INFLIXIMAB (INFLIXIMAB) (INFLIXIMAB) [Suspect]
     Indication: CROHN'S DISEASE
     Dosage: (5 MG/KG) INTRAVENOUS
     Route: 042

REACTIONS (1)
  - PERIDIVERTICULAR ABSCESS [None]
